FAERS Safety Report 8580944-X (Version None)
Quarter: 2012Q3

REPORT INFORMATION
  Report Type: 
  Country: None (occurrence: None)
  Receive Date: 20120809
  Receipt Date: 20120807
  Transmission Date: 20120928
  Serious: Yes (Other)
  Sender: FDA-Public Use
  Company Number: US-PFIZER INC-2012063714

PATIENT
  Age: 19 Year
  Sex: Female
  Weight: 61.2 kg

DRUGS (2)
  1. PRISTIQ [Suspect]
     Indication: FEELING ABNORMAL
  2. PRISTIQ [Suspect]
     Indication: ANXIETY
     Dosage: 50 MG DAILY
     Route: 048
     Dates: start: 20120308, end: 20120310

REACTIONS (6)
  - THROAT IRRITATION [None]
  - RASH [None]
  - EYE SWELLING [None]
  - EYE PRURITUS [None]
  - HYPERSENSITIVITY [None]
  - OCULAR HYPERAEMIA [None]
